FAERS Safety Report 9204341 (Version 1)
Quarter: 2013Q2

REPORT INFORMATION
  Report Type: Spontaneous
  Country: JM (occurrence: JM)
  Receive Date: 20130402
  Receipt Date: 20130402
  Transmission Date: 20140414
  Serious: Yes (Death, Hospitalization)
  Sender: FDA-Public Use
  Company Number: JM-B.I. PHARMACEUTICALS,INC./RIDGEFIELD-2013-CN-00498CN

PATIENT
  Sex: Female

DRUGS (1)
  1. PRADAX [Suspect]
     Dosage: 220 MG

REACTIONS (3)
  - Cardiac failure [Fatal]
  - Gastrointestinal haemorrhage [Unknown]
  - Renal failure [Unknown]
